FAERS Safety Report 17567670 (Version 1)
Quarter: 2020Q1

REPORT INFORMATION
  Report Type: Spontaneous
  Country: US (occurrence: US)
  Receive Date: 20200320
  Receipt Date: 20200320
  Transmission Date: 20200409
  Serious: Yes (Other)
  Sender: FDA-Public Use
  Company Number: US-HIKMA PHARMACEUTICALS USA INC.-US-H14001-20-01421

PATIENT
  Sex: Male
  Weight: 95.34 kg

DRUGS (1)
  1. CEFADROXIL. [Suspect]
     Active Substance: CEFADROXIL
     Indication: INFECTION
     Route: 048
     Dates: start: 20190515, end: 20200302

REACTIONS (2)
  - Renal impairment [Unknown]
  - Blood creatinine increased [Unknown]
